FAERS Safety Report 11508382 (Version 2)
Quarter: 2015Q3

REPORT INFORMATION
  Report Type: Report from Study
  Country: BE (occurrence: BE)
  Receive Date: 20150915
  Receipt Date: 20150924
  Transmission Date: 20151125
  Serious: Yes (Death, Other)
  Sender: FDA-Public Use
  Company Number: BE-GLAXOSMITHKLINE-BE2015GSK131088

PATIENT
  Age: 68 Year
  Sex: Male
  Weight: 69 kg

DRUGS (6)
  1. ELTROMBOPAG [Suspect]
     Active Substance: ELTROMBOPAG
     Indication: APLASIA PURE RED CELL
     Dosage: 50 MG, UNK
     Dates: start: 20150707, end: 201508
  2. OXYNORM [Concomitant]
     Active Substance: OXYCODONE HYDROCHLORIDE
     Indication: PAIN
     Dosage: UNK, PRN
     Dates: start: 20141122, end: 201508
  3. BEFACT FORTE [Concomitant]
     Indication: HYPOVITAMINOSIS
     Dosage: UNK
     Dates: start: 201408, end: 201508
  4. DUROGESIC [Concomitant]
     Active Substance: FENTANYL
     Indication: PAIN
     Dosage: 3.75 MG, Z
     Dates: start: 20141122, end: 201508
  5. OXYCONTIN [Concomitant]
     Active Substance: OXYCODONE HYDROCHLORIDE
     Indication: PAIN
     Dosage: UNK
     Dates: start: 201502, end: 201508
  6. FOLAVIT [Concomitant]
     Indication: ANAEMIA
     Dosage: 4 MG, 1D
     Dates: start: 201502, end: 201508

REACTIONS (1)
  - Death [Fatal]
